FAERS Safety Report 9117903 (Version 2)
Quarter: 2013Q1

REPORT INFORMATION
  Report Type: Spontaneous
  Country: BH (occurrence: BH)
  Receive Date: 20130208
  Receipt Date: 20130313
  Transmission Date: 20140127
  Serious: Yes (Death)
  Sender: FDA-Public Use
  Company Number: PHHY2013BH011950

PATIENT
  Sex: 0

DRUGS (1)
  1. GILENYA [Suspect]
     Indication: MULTIPLE SCLEROSIS
     Dosage: UNK UKN, UNK
     Route: 048
     Dates: start: 20120407, end: 20120806

REACTIONS (4)
  - Cardiac arrest [Fatal]
  - Loss of consciousness [Fatal]
  - Urosepsis [Fatal]
  - Bradycardia [Unknown]
